FAERS Safety Report 19983829 (Version 1)
Quarter: 2021Q4

REPORT INFORMATION
  Report Type: Spontaneous
  Country: US (occurrence: US)
  Receive Date: 20211022
  Receipt Date: 20211022
  Transmission Date: 20220304
  Serious: No
  Sender: FDA-Public Use
  Company Number: US-JNJFOC-20211025436

PATIENT
  Age: 2 Year
  Sex: Female

DRUGS (3)
  1. CHILDRENS MOTRIN [Suspect]
     Active Substance: IBUPROFEN
     Indication: Pain
     Dosage: 1 TEASPOON ONCE
     Route: 065
     Dates: start: 20211013
  2. CHILDRENS MOTRIN [Suspect]
     Active Substance: IBUPROFEN
     Indication: Pyrexia
  3. CHILDRENS MOTRIN [Suspect]
     Active Substance: IBUPROFEN
     Indication: Cough

REACTIONS (3)
  - Blister [Unknown]
  - Rash [Unknown]
  - Eye swelling [Unknown]

NARRATIVE: CASE EVENT DATE: 20211001
